FAERS Safety Report 6240246-3 (Version None)
Quarter: 2009Q2

REPORT INFORMATION
  Report Type: 
  Country: None (occurrence: None)
  Receive Date: 20090623
  Receipt Date: 20080506
  Transmission Date: 20091009
  Serious: No
  Sender: FDA-Public Use
  Company Number: US-ASTRAZENECA-2008UW09327

PATIENT
  Age: 87 Year
  Sex: Female
  Weight: 56.2 kg

DRUGS (7)
  1. PULMICORT FLEXHALER [Suspect]
     Indication: DYSPNOEA
     Dosage: 180 UG TWO PUFFS BID
     Route: 055
     Dates: start: 20080401
  2. TOPROL-XL [Concomitant]
  3. CRESTOR [Concomitant]
  4. LISINOPRIL AND HYDROCHLOROTHIAZIDE [Concomitant]
  5. THEOPHYLLINE [Concomitant]
  6. VITAMINS [Concomitant]
  7. CALCIUM [Concomitant]

REACTIONS (3)
  - ABDOMINAL PAIN UPPER [None]
  - DIARRHOEA [None]
  - VOMITING [None]
